FAERS Safety Report 7398205-3 (Version None)
Quarter: 2011Q2

REPORT INFORMATION
  Report Type: 
  Country: None (occurrence: None)
  Receive Date: 20110406
  Receipt Date: 20110329
  Transmission Date: 20111010
  Serious: Yes (Hospitalization, Other)
  Sender: FDA-Public Use
  Company Number: US-B.I. PHARMACEUTICALS,INC./RIDGEFIELD-2011-BP-08364BP

PATIENT
  Sex: Female
  Weight: 64 kg

DRUGS (4)
  1. AGGRENOX [Suspect]
     Indication: CAROTID ARTERY OCCLUSION
  2. PLAVIX [Suspect]
     Indication: CAROTID ARTERY OCCLUSION
     Dates: end: 20100319
  3. REBIF [Suspect]
     Indication: MULTIPLE SCLEROSIS
     Route: 058
     Dates: start: 20050824
  4. ASPIRIN [Suspect]
     Indication: CAROTID ARTERY OCCLUSION

REACTIONS (8)
  - HYPOAESTHESIA [None]
  - MONOPARESIS [None]
  - CAROTID ARTERY STENOSIS [None]
  - SUBDURAL HAEMATOMA [None]
  - HEAD INJURY [None]
  - MALAISE [None]
  - CAROTID ARTERY OCCLUSION [None]
  - PARAESTHESIA [None]
